FAERS Safety Report 6752711-0 (Version None)
Quarter: 2010Q2

REPORT INFORMATION
  Report Type: 
  Country: None (occurrence: None)
  Receive Date: 20100528
  Receipt Date: 20100224
  Transmission Date: 20101027
  Serious: Yes (Other)
  Sender: FDA-Public Use
  Company Number: TRP_06809_2010

PATIENT

DRUGS (2)
  1. INFERGEN [Suspect]
     Indication: HEPATITIS C
     Dosage: (15 MCG)
  2. RIBAVIRIN [Suspect]
     Indication: HEPATITIS C
     Dosage: (1200)

REACTIONS (3)
  - FATIGUE [None]
  - LEUKOPENIA [None]
  - NEUTROPENIA [None]
